FAERS Safety Report 4425655-7 (Version None)
Quarter: 2004Q3

REPORT INFORMATION
  Report Type: 
  Country: None (occurrence: None)
  Receive Date: 20040810
  Receipt Date: 20040802
  Transmission Date: 20050211
  Serious: Yes (Death)
  Sender: FDA-Public Use
  Company Number: USA-2004-0016094

PATIENT
  Age: 54 Year
  Sex: Male
  Weight: 113.4 kg

DRUGS (6)
  1. MORPHINE SULFATE [Suspect]
  2. COCAINE (COCAINE) [Suspect]
  3. DIAZEPAM [Suspect]
  4. CAFFEINE (CAFFEINE) [Concomitant]
  5. OXAZEPAM [Concomitant]
  6. TEMAZEPAM [Concomitant]

REACTIONS (11)
  - ACCIDENT [None]
  - AGITATION [None]
  - ATHEROSCLEROSIS [None]
  - CARDIOMEGALY [None]
  - CHEST PAIN [None]
  - DRUG ABUSER [None]
  - DRUG SCREEN POSITIVE [None]
  - DRUG TOXICITY [None]
  - POLYSUBSTANCE ABUSE [None]
  - PULMONARY OEDEMA [None]
  - SPINAL CORD INFECTION [None]
